FAERS Safety Report 9671474 (Version 4)
Quarter: 2014Q1

REPORT INFORMATION
  Report Type: Spontaneous
  Country: IT (occurrence: None)
  Receive Date: 20131104
  Receipt Date: 20140109
  Transmission Date: 20141002
  Serious: Yes (Hospitalization)
  Sender: FDA-Public Use
  Company Number: AUR-APL-2013-09140

PATIENT
  Age: 66 Year
  Sex: Female

DRUGS (4)
  1. CITALOPRAM (CITALOPRAM) [Suspect]
     Indication: PRODUCT USED FOR UNKNOWN INDICATION
     Dosage: TOTAL
     Route: 048
     Dates: start: 20131006, end: 20131006
  2. RISPERIDONE (RISPERIDONE) [Suspect]
     Indication: PRODUCT USED FOR UNKNOWN INDICATION
     Dosage: TOTAL
     Route: 048
     Dates: start: 20131006, end: 20131006
  3. CARDIOASPIRIN (ACETYLSALICYLIC ACID) [Suspect]
     Indication: PRODUCT USED FOR UNKNOWN INDICATION
     Dosage: TOTAL
     Route: 048
     Dates: start: 20131006, end: 20131006
  4. TRIATEC (PANADEINE CO) [Concomitant]

REACTIONS (5)
  - Tachycardia [None]
  - Overdose [None]
  - Sopor [None]
  - Intentional self-injury [None]
  - Blood pressure decreased [None]
